FAERS Safety Report 6980647-9 (Version None)
Quarter: 2010Q3

REPORT INFORMATION
  Report Type: 
  Country: None (occurrence: None)
  Receive Date: 20100914
  Receipt Date: 20100907
  Transmission Date: 20110219
  Serious: Yes (Death)
  Sender: FDA-Public Use
  Company Number: US-SANOFI-AVENTIS-2010SA039935

PATIENT
  Age: 73 Year
  Sex: Male
  Weight: 70.45 kg

DRUGS (3)
  1. MULTAQ [Suspect]
     Route: 048
     Dates: start: 20100129, end: 20100507
  2. ASPIRIN [Concomitant]
     Dates: start: 20070124, end: 20100508
  3. AMLODIPINE [Concomitant]
     Indication: HYPERTENSION
     Dates: start: 20091222, end: 20100508

REACTIONS (1)
  - SUDDEN CARDIAC DEATH [None]
